FAERS Safety Report 6191988-X (Version None)
Quarter: 2009Q2

REPORT INFORMATION
  Report Type: 
  Country: None (occurrence: None)
  Receive Date: 20090515
  Receipt Date: 20090506
  Transmission Date: 20091009
  Serious: Yes (Hospitalization)
  Sender: FDA-Public Use
  Company Number: B0483534A

PATIENT
  Sex: Female

DRUGS (9)
  1. LAMICTAL [Suspect]
     Dosage: 200MG PER DAY
     Route: 048
     Dates: start: 20070605, end: 20070711
  2. ACETAMINOPHEN [Concomitant]
  3. TERBINAFINE HCL [Concomitant]
  4. PRIMALAN [Concomitant]
  5. PROPOFAN [Concomitant]
  6. SOLUPRED [Concomitant]
  7. TERBINAFINE HCL [Concomitant]
     Indication: ONYCHOMYCOSIS
     Dosage: 250MG PER DAY
     Route: 048
  8. PROPOFAN [Concomitant]
     Route: 065
  9. ACETAMINOPHEN [Concomitant]
     Route: 065
     Dates: start: 20070615, end: 20070711

REACTIONS (28)
  - CHEILITIS [None]
  - CHILLS [None]
  - CONDITION AGGRAVATED [None]
  - CONJUNCTIVAL HYPERAEMIA [None]
  - CONJUNCTIVITIS [None]
  - DRUG DISPENSING ERROR [None]
  - DRUG HYPERSENSITIVITY [None]
  - DRUG NAME CONFUSION [None]
  - DRUG RASH WITH EOSINOPHILIA AND SYSTEMIC SYMPTOMS [None]
  - DYSPHAGIA [None]
  - ECZEMA [None]
  - EOSINOPHILIA [None]
  - FACE OEDEMA [None]
  - HEPATOCELLULAR INJURY [None]
  - LEUKOCYTOSIS [None]
  - LYMPHOCYTIC INFILTRATION [None]
  - LYMPHOCYTOSIS [None]
  - LYMPHOPENIA [None]
  - MALAISE [None]
  - PRURIGO [None]
  - PURPURA [None]
  - PYREXIA [None]
  - RASH MACULO-PAPULAR [None]
  - RENAL FAILURE ACUTE [None]
  - RESPIRATORY DISORDER [None]
  - SKIN LESION [None]
  - SKIN OEDEMA [None]
  - TOXIC SKIN ERUPTION [None]
